FAERS Safety Report 8291475-9 (Version None)
Quarter: 2012Q2

REPORT INFORMATION
  Report Type: 
  Country: None (occurrence: None)
  Receive Date: 20120417
  Receipt Date: 20120409
  Transmission Date: 20120825
  Serious: Yes (Other)
  Sender: FDA-Public Use
  Company Number: US-BAYER-2012-009727

PATIENT
  Age: 22 Year
  Sex: Female

DRUGS (3)
  1. MIRENA [Suspect]
     Indication: CONTRACEPTION
     Dosage: 20 MCG/24HR, CONT
     Route: 015
     Dates: start: 20100901, end: 20120106
  2. MIRENA [Suspect]
     Indication: MENORRHAGIA
  3. MIRENA [Suspect]
     Indication: MENSTRUAL CYCLE MANAGEMENT

REACTIONS (16)
  - WEIGHT INCREASED [None]
  - SKIN IRRITATION [None]
  - ABDOMINAL PAIN [None]
  - PAIN [None]
  - PULMONARY OEDEMA [None]
  - ALOPECIA [None]
  - FATIGUE [None]
  - DISTURBANCE IN ATTENTION [None]
  - ARTHRALGIA [None]
  - ACNE [None]
  - ADVERSE DRUG REACTION [None]
  - LOSS OF LIBIDO [None]
  - BREAST PAIN [None]
  - DEPRESSION [None]
  - FLUID RETENTION [None]
  - MOOD SWINGS [None]
